FAERS Safety Report 8952817 (Version 2)
Quarter: 2013Q1

REPORT INFORMATION
  Report Type: Spontaneous
  Country: US (occurrence: US)
  Receive Date: 20121204
  Receipt Date: 20130222
  Transmission Date: 20140127
  Serious: No
  Sender: FDA-Public Use
  Company Number: US-ASTRAZENECA-2012SE87357

PATIENT
  Age: 663 Month
  Sex: Female
  Weight: 54.4 kg

DRUGS (5)
  1. SYMBICORT PMDI [Suspect]
     Indication: ASTHMA
     Dosage: 80/4.5 MCG TWICE A DAY
     Route: 055
     Dates: start: 201111
  2. SYMBICORT PMDI [Suspect]
     Indication: ASTHMA
     Dosage: 160/4.5 MCG TWICE A DAY
     Route: 055
     Dates: start: 201111
  3. MONTELUKLAST [Concomitant]
     Indication: ASTHMA
     Dosage: SINGULAIR
     Dates: end: 201111
  4. MONTELUKLAST [Concomitant]
     Indication: ASTHMA
     Dosage: GENERIC
     Dates: start: 201208
  5. AMITRIPTYLINE [Concomitant]
     Indication: NEURALGIA

REACTIONS (1)
  - Vulvovaginal mycotic infection [Unknown]
